FAERS Safety Report 5958493-4 (Version None)
Quarter: 2008Q4

REPORT INFORMATION
  Report Type: 
  Country: None (occurrence: None)
  Receive Date: 20081119
  Receipt Date: 20081112
  Transmission Date: 20090506
  Serious: Yes (Other)
  Sender: FDA-Public Use
  Company Number: JP-PFIZER INC-2008095835

PATIENT
  Age: 4 Month
  Sex: Male

DRUGS (10)
  1. METHYLPREDNISOLONE 16MG TAB [Suspect]
     Indication: ANAPHYLACTIC REACTION
  2. BUSULFAN [Concomitant]
  3. CYCLOPHOSPHAMIDE [Concomitant]
  4. ANTI-THYMOCYTE GLOBULIN NOS [Concomitant]
  5. MYCOPHENOLATE MOFETIL [Concomitant]
  6. TACROLIMUS [Concomitant]
  7. DEFIBROTIDE [Concomitant]
  8. PGE 1 [Concomitant]
  9. URSODIOL [Concomitant]
  10. HEPARIN [Concomitant]

REACTIONS (1)
  - HYPERTROPHIC CARDIOMYOPATHY [None]
